FAERS Safety Report 6834301-4 (Version None)
Quarter: 2010Q3

REPORT INFORMATION
  Report Type: 
  Country: None (occurrence: None)
  Receive Date: 20100712
  Receipt Date: 20070701
  Transmission Date: 20110219
  Serious: No
  Sender: FDA-Public Use
  Company Number: US-PFIZER INC-2007022451

PATIENT
  Sex: Male

DRUGS (1)
  1. CHANTIX [Suspect]
     Indication: SMOKING CESSATION THERAPY
     Dates: end: 20070101

REACTIONS (4)
  - ABNORMAL DREAMS [None]
  - IRRITABILITY [None]
  - POOR QUALITY SLEEP [None]
  - SLEEP TALKING [None]
